FAERS Safety Report 11357402 (Version 3)
Quarter: 2015Q3

REPORT INFORMATION
  Report Type: Spontaneous
  Country: US (occurrence: US)
  Receive Date: 20150803
  Receipt Date: 20150903
  Transmission Date: 20151125
  Serious: No
  Sender: FDA-Public Use
  Company Number: US-ELI_LILLY_AND_COMPANY-US201205005130

PATIENT
  Age: 66 Year
  Sex: Female

DRUGS (4)
  1. CYMBALTA [Suspect]
     Active Substance: DULOXETINE HYDROCHLORIDE
     Indication: POST-TRAUMATIC STRESS DISORDER
     Dosage: 60 MG, QD
  2. ZYPREXA [Suspect]
     Active Substance: OLANZAPINE
     Indication: POST-TRAUMATIC STRESS DISORDER
  3. CYMBALTA [Suspect]
     Active Substance: DULOXETINE HYDROCHLORIDE
     Dosage: 30 MG, QD
  4. CYMBALTA [Suspect]
     Active Substance: DULOXETINE HYDROCHLORIDE
     Dosage: 60 MG, QD

REACTIONS (8)
  - Tooth fracture [Unknown]
  - Oral disorder [Not Recovered/Not Resolved]
  - Weight increased [Unknown]
  - Tremor [Unknown]
  - Off label use [Recovered/Resolved]
  - Dyspnoea [Unknown]
  - Musculoskeletal stiffness [Unknown]
  - Panic reaction [Not Recovered/Not Resolved]
